FAERS Safety Report 16906890 (Version 1)
Quarter: 2019Q4

REPORT INFORMATION
  Report Type: Spontaneous
  Country: US (occurrence: US)
  Receive Date: 20191011
  Receipt Date: 20191011
  Transmission Date: 20200122
  Serious: Yes (Other)
  Sender: FDA-Public Use
  Company Number: US-BRISTOL-MYERS SQUIBB COMPANY-BMS-2019-096770

PATIENT
  Age: 42 Year
  Sex: Male
  Weight: 179.16 kg

DRUGS (5)
  1. METOPROLOL. [Concomitant]
     Active Substance: METOPROLOL
     Indication: PRODUCT USED FOR UNKNOWN INDICATION
     Dosage: 25 MILLIGRAM
     Route: 065
  2. PRAVASTATIN. [Concomitant]
     Active Substance: PRAVASTATIN
     Indication: PRODUCT USED FOR UNKNOWN INDICATION
     Dosage: 40 MILLIGRAM
     Route: 065
  3. LISINOPRIL. [Concomitant]
     Active Substance: LISINOPRIL
     Indication: PRODUCT USED FOR UNKNOWN INDICATION
     Dosage: 2.5 MILLIGRAM
     Route: 065
  4. ELIQUIS [Suspect]
     Active Substance: APIXABAN
     Indication: CEREBROVASCULAR ACCIDENT PROPHYLAXIS
     Dosage: 5 MILLIGRAM, BID
     Route: 048
     Dates: start: 201805
  5. FLECAINIDE [Concomitant]
     Active Substance: FLECAINIDE
     Indication: PRODUCT USED FOR UNKNOWN INDICATION
     Route: 065

REACTIONS (10)
  - Glucose tolerance impaired [Recovered/Resolved]
  - Neuropathy peripheral [Unknown]
  - Cardiac disorder [Unknown]
  - Hiatus hernia [Unknown]
  - Hypertension [Unknown]
  - Chest pain [Unknown]
  - Cardiac failure congestive [Unknown]
  - Oesophagitis [Unknown]
  - Weight decreased [Unknown]
  - Gallbladder disorder [Unknown]

NARRATIVE: CASE EVENT DATE: 20190313
